FAERS Safety Report 24362690 (Version 1)
Quarter: 2024Q3

REPORT INFORMATION
  Report Type: Spontaneous
  Country: US (occurrence: US)
  Receive Date: 20240925
  Receipt Date: 20240925
  Transmission Date: 20241017
  Serious: No
  Sender: INCYTE
  Company Number: US-INCYTE CORPORATION-2024IN009757

PATIENT

DRUGS (1)
  1. JAKAFI [Suspect]
     Active Substance: RUXOLITINIB
     Indication: Thrombocytosis
     Dosage: 5 MILLIGRAM, BID
     Route: 048
     Dates: start: 20240828

REACTIONS (3)
  - Headache [Unknown]
  - Back pain [Unknown]
  - Off label use [Unknown]

NARRATIVE: CASE EVENT DATE: 20240828
